FAERS Safety Report 5854468-4 (Version None)
Quarter: 2008Q3

REPORT INFORMATION
  Report Type: 
  Country: None (occurrence: None)
  Receive Date: 20080822
  Receipt Date: 20080813
  Transmission Date: 20090109
  Serious: Yes (Hospitalization, Other)
  Sender: FDA-Public Use
  Company Number: US-PFIZER INC-2008049752

PATIENT
  Sex: Female
  Weight: 52 kg

DRUGS (11)
  1. SU-011,248 [Suspect]
     Indication: BREAST CANCER METASTATIC
     Route: 048
     Dates: start: 20080326, end: 20080624
  2. ACETYLSALICYLIC ACID SRT [Concomitant]
     Route: 048
  3. NORVASC [Concomitant]
     Route: 048
  4. COZAAR [Concomitant]
     Route: 048
     Dates: start: 20080418
  5. VITAMIN B-COMPLEX WITH VITAMIN C [Concomitant]
     Dosage: TEXT:2 TABLETS-FREQ:QD
     Route: 048
     Dates: start: 20080418
  6. LUMIGAN [Concomitant]
     Dosage: TEXT:0.03 PCT-FREQ:QD
     Route: 047
     Dates: start: 20071116
  7. MULTI-VITAMINS [Concomitant]
     Dosage: TEXT:1 TABLET-FREQ:QD
     Route: 048
     Dates: start: 20060104
  8. LEKOVIT CA [Concomitant]
     Dosage: TEXT:600/200-FREQ:BID
     Route: 048
     Dates: start: 20050209
  9. ATENOLOL [Concomitant]
     Route: 048
     Dates: start: 20050209
  10. MAGIC MOUTHWASH [Concomitant]
     Dosage: FREQ:PRN
     Route: 048
     Dates: start: 20080525
  11. COSOPT [Concomitant]
     Dosage: TEXT:0.5 % - 2 % 2 DROPS-FREQ:DAILY
     Route: 047

REACTIONS (3)
  - ATAXIA [None]
  - CONFUSIONAL STATE [None]
  - HYPERTENSION [None]
